FAERS Safety Report 6240382-1 (Version None)
Quarter: 2009Q2

REPORT INFORMATION
  Report Type: 
  Country: None (occurrence: None)
  Receive Date: 20090623
  Receipt Date: 20080610
  Transmission Date: 20091009
  Serious: No
  Sender: FDA-Public Use
  Company Number: US-ASTRAZENECA-2008UW11608

PATIENT
  Age: 86 Year
  Sex: Female
  Weight: 51.3 kg

DRUGS (11)
  1. PULMICORT RESPULES [Suspect]
     Route: 055
  2. ADVAIR HFA [Concomitant]
  3. ASTELIN [Concomitant]
  4. CLARITIN [Concomitant]
  5. PLAVIX [Concomitant]
  6. NORVASC [Concomitant]
  7. ZETIA [Concomitant]
  8. ZOCOR [Concomitant]
  9. MULTI-VITAMINS [Concomitant]
  10. FISH OIL [Concomitant]
  11. DUONEB [Concomitant]

REACTIONS (2)
  - MEDICATION ERROR [None]
  - TREMOR [None]
